FAERS Safety Report 17171072 (Version 2)
Quarter: 2025Q3

REPORT INFORMATION
  Report Type: Spontaneous
  Country: EU (occurrence: EU)
  Receive Date: 20191218
  Receipt Date: 20250716
  Transmission Date: 20251020
  Serious: Yes (Hospitalization)
  Sender: ALEXION PHARMACEUTICALS
  Company Number: None

PATIENT
  Sex: Female

DRUGS (4)
  1. QUETIAPINE FUMARATE [Suspect]
     Active Substance: QUETIAPINE FUMARATE
  2. ATARAX [Suspect]
     Active Substance: HYDROXYZINE HYDROCHLORIDE
  3. PROPIOMAZINE [Suspect]
     Active Substance: PROPIOMAZINE
  4. OXAZEPAM [Suspect]
     Active Substance: OXAZEPAM

REACTIONS (6)
  - Suicide attempt [Unknown]
  - Intentional overdose [Unknown]
  - Dysarthria [Unknown]
  - Tachycardia [Unknown]
  - Hypotension [Unknown]
  - Miosis [Unknown]

NARRATIVE: CASE EVENT DATE: 20180526
